FAERS Safety Report 24090170 (Version 1)
Quarter: 2024Q3

REPORT INFORMATION
  Report Type: Spontaneous
  Country: US (occurrence: None)
  Receive Date: 20240712
  Receipt Date: 20240712
  Transmission Date: 20241017
  Serious: Yes (Hospitalization)
  Sender: Public
  Company Number: None

PATIENT
  Sex: Female

DRUGS (11)
  1. DEFERASIROX [Suspect]
     Active Substance: DEFERASIROX
     Indication: Product used for unknown indication
     Dosage: FREQ: TAKE 6 TABLETS (2160 MG TOTAL) BY MOUTH EVERY DAY
     Route: 048
     Dates: start: 20210325
  2. AZITHROMYCIN [Concomitant]
     Active Substance: AZITHROMYCIN
  3. BUSPIRONE [Concomitant]
     Active Substance: BUSPIRONE HYDROCHLORIDE
  4. DEFERASIROX [Concomitant]
     Active Substance: DEFERASIROX
  5. ELIQUIS [Concomitant]
     Active Substance: APIXABAN
  6. ENOXAPARIN [Concomitant]
     Active Substance: ENOXAPARIN
  7. GABAPENTIN [Concomitant]
     Active Substance: GABAPENTIN
  8. HYDROXYZINE HYDROCHLORIDE [Concomitant]
     Active Substance: HYDROXYZINE HYDROCHLORIDE
  9. MELOXICAM [Concomitant]
     Active Substance: MELOXICAM
  10. METHYLPREDNISOLONE [Concomitant]
     Active Substance: METHYLPREDNISOLONE
  11. MONTELUKAST SODIUM [Concomitant]
     Active Substance: MONTELUKAST SODIUM

REACTIONS (2)
  - Surgery [None]
  - Therapy interrupted [None]
